FAERS Safety Report 6137844-4 (Version None)
Quarter: 2009Q1

REPORT INFORMATION
  Report Type: 
  Country: None (occurrence: None)
  Receive Date: 20090331
  Receipt Date: 20090316
  Transmission Date: 20090719
  Serious: Yes (Hospitalization, Other)
  Sender: FDA-Public Use
  Company Number: FR-BAXTER-2008BH013080

PATIENT
  Age: 53 Year
  Sex: Female

DRUGS (14)
  1. EXTRANEAL [Suspect]
     Indication: PERITONEAL DIALYSIS
     Route: 033
     Dates: start: 20030623, end: 20080530
  2. GAMBROSOL [Suspect]
     Indication: PERITONEAL DIALYSIS
     Route: 033
     Dates: start: 20030623, end: 20080530
  3. EPOGEN [Concomitant]
  4. PANTOPRAZOLE SODIUM [Concomitant]
  5. FUROSEMIDE [Concomitant]
  6. IRON SUCROSE [Concomitant]
  7. DEDROGYL [Concomitant]
  8. ZOPICLONE [Concomitant]
  9. RENAGEL [Concomitant]
  10. FOSRENOL [Concomitant]
  11. CORTANCYL [Concomitant]
  12. STABLON [Concomitant]
  13. TAHOR [Concomitant]
  14. UN-ALFA [Concomitant]

REACTIONS (2)
  - ASCITES [None]
  - PERITONITIS SCLEROSING [None]
